FAERS Safety Report 24152546 (Version 2)
Quarter: 2024Q3

REPORT INFORMATION
  Report Type: Report from Study
  Country: IL (occurrence: IL)
  Receive Date: 20240730
  Receipt Date: 20240801
  Transmission Date: 20241017
  Serious: Yes (Hospitalization)
  Sender: ABBVIE
  Company Number: IL-ABBVIE-5853597

PATIENT
  Sex: Male

DRUGS (4)
  1. SKYRIZI [Suspect]
     Active Substance: RISANKIZUMAB-RZAA
     Indication: Crohn^s disease
     Dosage: ON BODY INJECTOR ?DURATION TEXT: 3 LOADING DOSES SINCE 1-MAY-2024
     Route: 058
     Dates: start: 20240724
  2. SKYRIZI [Suspect]
     Active Substance: RISANKIZUMAB-RZAA
     Indication: Crohn^s disease
     Dosage: DURATION TEXT: 2ND DOSE DELAYED DUE TO HOSPITALIZATION?LAST ADMIN DATE 2024
     Route: 042
     Dates: start: 20240501
  3. SKYRIZI [Suspect]
     Active Substance: RISANKIZUMAB-RZAA
     Indication: Crohn^s disease
     Dosage: FORM STRENGTH: 600 MILLIGRAM?LAST ADMIN DATE 2024
     Route: 042
     Dates: start: 20240122
  4. Fusid [Concomitant]
     Indication: Product used for unknown indication

REACTIONS (13)
  - Pulmonary oedema [Recovered/Resolved]
  - Fungal skin infection [Recovered/Resolved]
  - Cardiac failure [Unknown]
  - Pulmonary hypertension [Unknown]
  - Pleural effusion [Unknown]
  - Aortic valve incompetence [Unknown]
  - Eye infection [Unknown]
  - COVID-19 [Unknown]
  - Aphthous ulcer [Unknown]
  - Aortic aneurysm [Unknown]
  - Mitral valve incompetence [Unknown]
  - Decreased appetite [Unknown]
  - Pericardial effusion [Unknown]

NARRATIVE: CASE EVENT DATE: 20240101
